FAERS Safety Report 6543709-6 (Version None)
Quarter: 2010Q1

REPORT INFORMATION
  Report Type: 
  Country: None (occurrence: None)
  Receive Date: 20100119
  Receipt Date: 20100119
  Transmission Date: 20100710
  Serious: Yes (Disabling)
  Sender: FDA-Public Use
  Company Number: None

PATIENT
  Sex: Female
  Weight: 33.1 kg

DRUGS (1)
  1. VITAMIN D [Suspect]
     Dosage: 3ML ONCE WEEKLY PO
     Route: 048

REACTIONS (1)
  - BLOOD 25-HYDROXYCHOLECALCIFEROL INCREASED [None]
